FAERS Safety Report 7350906-9 (Version None)
Quarter: 2011Q1

REPORT INFORMATION
  Report Type: 
  Country: None (occurrence: None)
  Receive Date: 20110314
  Receipt Date: 20110310
  Transmission Date: 20110831
  Serious: No
  Sender: FDA-Public Use
  Company Number: US-PFIZER INC-2011021016

PATIENT
  Sex: Male
  Weight: 77.098 kg

DRUGS (4)
  1. LIPITOR [Suspect]
     Indication: BLOOD CHOLESTEROL INCREASED
     Dosage: 40 MG, UNK
     Route: 048
     Dates: end: 20110101
  2. AZOR [Concomitant]
     Indication: HYPERTENSION
     Dosage: UNK
     Route: 048
  3. NEXIUM [Concomitant]
     Dosage: UNK
  4. AVODART [Concomitant]
     Dosage: UNK

REACTIONS (1)
  - PRURITUS [None]
